FAERS Safety Report 21972729 (Version 2)
Quarter: 2023Q1

REPORT INFORMATION
  Report Type: Spontaneous
  Country: US (occurrence: US)
  Receive Date: 20230209
  Receipt Date: 20230320
  Transmission Date: 20230418
  Serious: No
  Sender: FDA-Public Use
  Company Number: US-PFIZER INC-PV202300025035

PATIENT
  Age: 70 Year

DRUGS (1)
  1. PREMARIN [Suspect]
     Active Substance: ESTROGENS, CONJUGATED
     Indication: Hormone replacement therapy
     Dosage: UNK, (TAKING ONE AND SKIPPING, LIKE, 2 DAYS AND THEN TAKE IT, YOU KNOW, THE 4TH DAY)

REACTIONS (13)
  - Intentional product misuse [Unknown]
  - Fibromyalgia [Not Recovered/Not Resolved]
  - Pruritus [Unknown]
  - Scratch [Unknown]
  - Contusion [Unknown]
  - Irritability [Unknown]
  - Fall [Unknown]
  - COVID-19 [Unknown]
  - Fatigue [Unknown]
  - Vomiting [Unknown]
  - Cough [Unknown]
  - Malaise [Unknown]
  - Facial pain [Unknown]
